FAERS Safety Report 6991974-3 (Version None)
Quarter: 2010Q3

REPORT INFORMATION
  Report Type: 
  Country: None (occurrence: None)
  Receive Date: 20100917
  Receipt Date: 20100909
  Transmission Date: 20110219
  Serious: Yes (Hospitalization)
  Sender: FDA-Public Use
  Company Number: US-US-EMD SERONO, INC.-7011606

PATIENT
  Sex: Female
  Weight: 47 kg

DRUGS (3)
  1. REBIF [Suspect]
     Indication: MULTIPLE SCLEROSIS
     Route: 058
     Dates: start: 20100629
  2. TOPAMAX [Concomitant]
     Indication: MIGRAINE
     Dates: start: 19960101
  3. FIORICET [Concomitant]
     Indication: MIGRAINE

REACTIONS (8)
  - CENTRAL NERVOUS SYSTEM LESION [None]
  - EYE MOVEMENT DISORDER [None]
  - HEADACHE [None]
  - INJECTION SITE ERYTHEMA [None]
  - INJECTION SITE PAIN [None]
  - MIGRAINE [None]
  - NYSTAGMUS [None]
  - VISION BLURRED [None]
